FAERS Safety Report 10012865 (Version 1)
Quarter: 2014Q1

REPORT INFORMATION
  Report Type: Spontaneous
  Country: US (occurrence: US)
  Receive Date: 20140314
  Receipt Date: 20140314
  Transmission Date: 20141002
  Serious: Yes (Other)
  Sender: FDA-Public Use
  Company Number: US-PFIZER INC-2014073460

PATIENT
  Age: 40 Year
  Sex: Male

DRUGS (14)
  1. XANAX [Suspect]
     Indication: DEPRESSION
     Dosage: UNK
  2. XANAX [Suspect]
     Indication: POST-TRAUMATIC STRESS DISORDER
  3. CELEBREX [Suspect]
     Indication: DEPRESSION
     Dosage: UNK
  4. CELEBREX [Suspect]
     Indication: POST-TRAUMATIC STRESS DISORDER
  5. LITHIUM CARBONATE [Suspect]
     Indication: DEPRESSION
     Dosage: UNK
  6. LITHIUM CARBONATE [Suspect]
     Indication: POST-TRAUMATIC STRESS DISORDER
  7. ZOLOFT [Suspect]
     Indication: DEPRESSION
     Dosage: 25 MG, UNK
  8. ZOLOFT [Suspect]
     Indication: POST-TRAUMATIC STRESS DISORDER
  9. WELLBUTRIN [Suspect]
     Indication: DEPRESSION
     Dosage: UNK
  10. WELLBUTRIN [Suspect]
     Indication: POST-TRAUMATIC STRESS DISORDER
  11. DEPAKOTE [Suspect]
     Indication: DEPRESSION
     Dosage: UNK
  12. DEPAKOTE [Suspect]
     Indication: POST-TRAUMATIC STRESS DISORDER
  13. SEROQUEL [Suspect]
     Indication: DEPRESSION
     Dosage: UNK
  14. SEROQUEL [Suspect]
     Indication: POST-TRAUMATIC STRESS DISORDER

REACTIONS (5)
  - Suicidal ideation [Unknown]
  - Homicidal ideation [Unknown]
  - Activities of daily living impaired [Unknown]
  - Abnormal behaviour [Unknown]
  - Somnolence [Unknown]
